FAERS Safety Report 6517896-X (Version None)
Quarter: 2009Q4

REPORT INFORMATION
  Report Type: 
  Country: None (occurrence: None)
  Receive Date: 20091223
  Receipt Date: 20091223
  Transmission Date: 20100525
  Serious: Yes (Other)
  Sender: FDA-Public Use
  Company Number: None

PATIENT
  Age: 60 Year
  Sex: Female
  Weight: 74.8435 kg

DRUGS (6)
  1. LAMOTRIGINE [Suspect]
     Indication: SOMNOLENCE
     Dosage: ONE EVERY 6 HOURS
     Dates: start: 20090807
  2. PROAIR HFA [Concomitant]
  3. TRILEPTAL [Concomitant]
  4. CALCIUM [Concomitant]
  5. OMEPRAZOLE [Concomitant]
  6. TAMOXIFEN CITRATE [Concomitant]

REACTIONS (4)
  - CONVULSION [None]
  - DYSPNOEA [None]
  - FATIGUE [None]
  - PRODUCT SUBSTITUTION ISSUE [None]
